FAERS Safety Report 14649889 (Version 1)
Quarter: 2018Q1

REPORT INFORMATION
  Report Type: Spontaneous
  Country: CO (occurrence: CO)
  Receive Date: 20180316
  Receipt Date: 20180316
  Transmission Date: 20180509
  Serious: Yes (Other)
  Sender: FDA-Public Use
  Company Number: CO-BAXTER-2018BAX008613

PATIENT

DRUGS (1)
  1. TISSEEL VH S/D [Suspect]
     Active Substance: APROTININ\CALCIUM CHLORIDE\FIBRINOGEN HUMAN\FACTOR XIII CONCENTRATE (HUMAN)\THROMBIN
     Indication: HAEMOSTASIS
     Dosage: TWO SEALANTS FROM THE SAME LOT NUMBER
     Route: 061
     Dates: start: 20180302

REACTIONS (3)
  - Drug ineffective [Recovered/Resolved]
  - Poor quality drug administered [Unknown]
  - Product quality issue [Unknown]

NARRATIVE: CASE EVENT DATE: 20180302
